FAERS Safety Report 11072811 (Version 1)
Quarter: 2015Q2

REPORT INFORMATION
  Report Type: Spontaneous
  Country: CA (occurrence: CA)
  Receive Date: 20150428
  Receipt Date: 20150428
  Transmission Date: 20150821
  Serious: Yes (Other)
  Sender: FDA-Public Use
  Company Number: CA-ASTRAZENECA-2015SE36928

PATIENT
  Age: 68 Year
  Sex: Female
  Weight: 57.2 kg

DRUGS (5)
  1. IMOVANE [Concomitant]
     Active Substance: ZOPICLONE
  2. CRESTOR [Suspect]
     Active Substance: ROSUVASTATIN CALCIUM
     Indication: ARTERIOSCLEROSIS
     Route: 048
  3. ASA [Concomitant]
     Active Substance: ASPIRIN
  4. FOSAMAX [Concomitant]
     Active Substance: ALENDRONATE SODIUM
  5. LOSEC [Concomitant]
     Active Substance: OMEPRAZOLE

REACTIONS (1)
  - Palpitations [Recovered/Resolved]
